FAERS Safety Report 7465039-0 (Version None)
Quarter: 2011Q2

REPORT INFORMATION
  Report Type: 
  Country: None (occurrence: None)
  Receive Date: 20110428
  Receipt Date: 20110413
  Transmission Date: 20111010
  Serious: Yes (Other)
  Sender: FDA-Public Use
  Company Number: 2011MA003849

PATIENT
  Age: 6 Year
  Sex: Female

DRUGS (1)
  1. PHENYTOIN [Suspect]
     Indication: EPILEPSY
     Dosage: 5 MG/KG;OD

REACTIONS (10)
  - VITAMIN D DEFICIENCY [None]
  - MUSCULAR WEAKNESS [None]
  - BLOOD CALCIUM DECREASED [None]
  - HAEMOGLOBIN DECREASED [None]
  - HYPERPARATHYROIDISM SECONDARY [None]
  - NEUROLOGICAL SYMPTOM [None]
  - GAIT DISTURBANCE [None]
  - ANTICONVULSANT DRUG LEVEL DECREASED [None]
  - BLOOD ALKALINE PHOSPHATASE INCREASED [None]
  - BLOOD CREATINE PHOSPHOKINASE INCREASED [None]
